FAERS Safety Report 7455181-2 (Version None)
Quarter: 2011Q2

REPORT INFORMATION
  Report Type: 
  Country: None (occurrence: None)
  Receive Date: 20110503
  Receipt Date: 20110421
  Transmission Date: 20111010
  Serious: Yes (Other)
  Sender: FDA-Public Use
  Company Number: PHHY2011JP34904

PATIENT
  Age: 62 Year
  Sex: Female

DRUGS (1)
  1. VOLTAREN [Suspect]
     Indication: BACK PAIN
     Dosage: 25 MG, DAILY
     Route: 054

REACTIONS (2)
  - SHOCK [None]
  - BLOOD PRESSURE DECREASED [None]
